FAERS Safety Report 9959267 (Version 2)
Quarter: 2014Q1

REPORT INFORMATION
  Report Type: Report from Study
  Country: US (occurrence: US)
  Receive Date: 20140305
  Receipt Date: 20140305
  Transmission Date: 20141002
  Serious: No
  Sender: FDA-Public Use
  Company Number: US-ABBVIE-13P-163-1092017-00

PATIENT
  Age: 76 Year
  Sex: Female
  Weight: 59.93 kg

DRUGS (7)
  1. HUMIRA [Suspect]
     Indication: RHEUMATOID ARTHRITIS
     Dosage: 40MG INITIAL DOSE
     Dates: start: 20130507, end: 20130607
  2. GLIMEPERIDE [Concomitant]
     Indication: DIABETES MELLITUS
     Dates: start: 2008
  3. MULTIVITAMIN [Concomitant]
     Indication: PRODUCT USED FOR UNKNOWN INDICATION
  4. GLUCOSAMINE [Concomitant]
     Indication: PRODUCT USED FOR UNKNOWN INDICATION
  5. GLYBURIDE [Concomitant]
     Indication: DIABETES MELLITUS
     Dosage: 1X DAILY PRIOR TO LARGEST MEAL
  6. ARAVA [Concomitant]
     Indication: RHEUMATOID ARTHRITIS
  7. PROBIOTICS [Concomitant]
     Indication: SUPPLEMENTATION THERAPY

REACTIONS (6)
  - Diarrhoea [Recovering/Resolving]
  - Abdominal discomfort [Recovering/Resolving]
  - Pruritus generalised [Not Recovered/Not Resolved]
  - Urticaria papular [Not Recovered/Not Resolved]
  - Paraesthesia [Recovering/Resolving]
  - Urticaria [Recovering/Resolving]
